FAERS Safety Report 17141529 (Version 2)
Quarter: 2020Q2

REPORT INFORMATION
  Report Type: Spontaneous
  Country: FR (occurrence: FR)
  Receive Date: 20191211
  Receipt Date: 20200605
  Transmission Date: 20200713
  Serious: Yes (Death, Hospitalization)
  Sender: FDA-Public Use
  Company Number: FR-ASTRAZENECA-2019SF75171

PATIENT
  Age: 78 Year
  Sex: Female
  Weight: 100 kg

DRUGS (18)
  1. LORMETAZEPAM [Suspect]
     Active Substance: LORMETAZEPAM
     Route: 048
  2. ZOPICLONE [Suspect]
     Active Substance: ZOPICLONE
     Dosage: 1 PATCH/DAY
     Route: 023
  3. ROPINIROLE BASE [Suspect]
     Active Substance: ROPINIROLE HYDROCHLORIDE
     Route: 048
  4. MOLSIDOMINE [Suspect]
     Active Substance: MOLSIDOMINE
     Route: 048
  5. SKENAN [Suspect]
     Active Substance: MORPHINE SULFATE
     Route: 048
  6. PARACETAMOL [Suspect]
     Active Substance: ACETAMINOPHEN
     Route: 048
  7. BETAXOLOL BASE [Suspect]
     Active Substance: BETAXOLOL
     Route: 048
     Dates: end: 20191114
  8. METFORMINE [Suspect]
     Active Substance: METFORMIN HYDROCHLORIDE
     Indication: TYPE 2 DIABETES MELLITUS
     Route: 048
     Dates: end: 20191114
  9. DIAFUSOR [Suspect]
     Active Substance: NITROGLYCERIN
     Route: 048
  10. ACTISKENAN [Suspect]
     Active Substance: MORPHINE SULFATE
     Route: 048
  11. DICLOFENAC [Suspect]
     Active Substance: DICLOFENAC
     Route: 048
     Dates: end: 20191112
  12. FOLIC ACID. [Suspect]
     Active Substance: FOLIC ACID
     Route: 048
  13. LOXEN [NICARDIPINE HYDROCHLORIDE] [Suspect]
     Active Substance: NICARDIPINE HYDROCHLORIDE
     Indication: HYPERTENSION
     Route: 048
  14. OMEPRAZOLE. [Suspect]
     Active Substance: OMEPRAZOLE
     Indication: RESTLESS LEGS SYNDROME
     Route: 048
  15. RAMIPRIL. [Suspect]
     Active Substance: RAMIPRIL
     Route: 048
  16. LANTUS [Suspect]
     Active Substance: INSULIN GLARGINE
     Indication: TYPE 2 DIABETES MELLITUS
     Route: 065
  17. FUROSEMIDE. [Suspect]
     Active Substance: FUROSEMIDE
     Route: 048
  18. CEFTRIAXONE BASE [Suspect]
     Active Substance: CEFTRIAXONE
     Route: 065

REACTIONS (1)
  - Acquired haemophilia [Fatal]

NARRATIVE: CASE EVENT DATE: 20191010
